FAERS Safety Report 22015017 (Version 1)
Quarter: 2023Q1

REPORT INFORMATION
  Report Type: Spontaneous
  Country: US (occurrence: US)
  Receive Date: 20230221
  Receipt Date: 20230221
  Transmission Date: 20230417
  Serious: No
  Sender: FDA-Public Use
  Company Number: US-SA-SAC20230216000696

PATIENT
  Sex: Male
  Weight: 75.7 kg

DRUGS (6)
  1. DUPIXENT [Suspect]
     Active Substance: DUPILUMAB
     Indication: Illness
     Dosage: 300 MG, QOW
     Route: 058
  2. DUPIXENT [Suspect]
     Active Substance: DUPILUMAB
     Indication: Dermatitis atopic
     Dosage: 300 MG, Q10D
     Route: 058
  3. METHOTREXATE [Concomitant]
     Active Substance: METHOTREXATE
  4. TRIAMCINOLONE [Concomitant]
     Active Substance: TRIAMCINOLONE
  5. DESOXIMETASONE [Concomitant]
     Active Substance: DESOXIMETASONE
  6. CLOBETASOL [Concomitant]
     Active Substance: CLOBETASOL

REACTIONS (3)
  - Dermatitis atopic [Unknown]
  - Inappropriate schedule of product administration [Unknown]
  - Therapeutic response shortened [Unknown]
